FAERS Safety Report 4745265-1 (Version None)
Quarter: 2005Q3

REPORT INFORMATION
  Report Type: 
  Country: None (occurrence: None)
  Receive Date: 20050812
  Receipt Date: 20050803
  Transmission Date: 20060218
  Serious: Yes (Hospitalization)
  Sender: FDA-Public Use
  Company Number: 2005-08-0163

PATIENT
  Sex: Male
  Weight: 12 kg

DRUGS (5)
  1. CELESTONE [Suspect]
     Indication: NASOPHARYNGITIS
     Dosage: 120 DROPS QD ORAL
     Route: 048
     Dates: start: 20050628, end: 20050630
  2. IBUPROFEN [Suspect]
     Indication: NASOPHARYNGITIS
     Dosage: ORAL
     Route: 048
     Dates: start: 20050628, end: 20050630
  3. BIAFINE TOPICAL [Concomitant]
  4. DOLIPRANE [Concomitant]
  5. CEFUROXIME AXETIL [Concomitant]

REACTIONS (3)
  - DUODENAL ULCER [None]
  - ERYTHROPENIA [None]
  - VOMITING [None]
